FAERS Safety Report 4982017-1 (Version None)
Quarter: 2006Q2

REPORT INFORMATION
  Report Type: 
  Country: None (occurrence: None)
  Receive Date: 20060425
  Receipt Date: 20060419
  Transmission Date: 20061013
  Serious: Yes (Hospitalization, Other)
  Sender: FDA-Public Use
  Company Number: 2006AP01873

PATIENT
  Age: 74 Year
  Sex: Female

DRUGS (5)
  1. TENORMIN [Suspect]
     Indication: ATRIAL FIBRILLATION
     Route: 048
     Dates: start: 20060403, end: 20060411
  2. OMEPRAL [Concomitant]
     Route: 041
     Dates: start: 20060104
  3. VASOLAN [Concomitant]
     Indication: TACHYCARDIA
     Route: 048
     Dates: start: 20060123
  4. VASOLAN [Concomitant]
     Indication: ATRIAL FIBRILLATION
     Route: 048
     Dates: start: 20060123
  5. VASOLAN [Concomitant]
     Indication: HYPERTENSION
     Route: 048
     Dates: start: 20060123

REACTIONS (8)
  - ALANINE AMINOTRANSFERASE INCREASED [None]
  - ASTHENIA [None]
  - BLOOD LACTATE DEHYDROGENASE INCREASED [None]
  - BLOOD URIC ACID INCREASED [None]
  - FALL [None]
  - LIVER DISORDER [None]
  - PLATELET COUNT DECREASED [None]
  - SYSTOLIC HYPERTENSION [None]
